FAERS Safety Report 9052887 (Version 1)
Quarter: 2013Q1

REPORT INFORMATION
  Report Type: Spontaneous
  Country: US (occurrence: US)
  Receive Date: 20130207
  Receipt Date: 20130207
  Transmission Date: 20140127
  Serious: No
  Sender: FDA-Public Use
  Company Number: US-B.I. PHARMACEUTICALS,INC./RIDGEFIELD-2013-BI-03456BP

PATIENT
  Age: 41 None
  Sex: Male
  Weight: 113 kg

DRUGS (1)
  1. FLOMAX CAPSULES [Suspect]
     Indication: BENIGN PROSTATIC HYPERPLASIA
     Dosage: 0.8 MG
     Route: 048
     Dates: start: 20130203

REACTIONS (2)
  - Accidental overdose [Not Recovered/Not Resolved]
  - Accidental overdose [Recovered/Resolved]
